FAERS Safety Report 19873100 (Version 2)
Quarter: 2022Q3

REPORT INFORMATION
  Report Type: Spontaneous
  Country: US (occurrence: US)
  Receive Date: 20210923
  Receipt Date: 20220718
  Transmission Date: 20221027
  Serious: Yes (Other)
  Sender: FDA-Public Use
  Company Number: US-BEH-2021133820

PATIENT
  Age: 71 Year
  Sex: Female
  Weight: 61.3 kg

DRUGS (4)
  1. HAEGARDA [Suspect]
     Active Substance: HUMAN C1-ESTERASE INHIBITOR
     Indication: Hereditary angioedema
     Dosage: 2000 INTERNATIONAL UNIT, EVERY 3 TO 4 DAYS
     Route: 058
  2. HAEGARDA [Suspect]
     Active Substance: HUMAN C1-ESTERASE INHIBITOR
     Indication: Prophylaxis
     Dosage: UNK
     Route: 065
     Dates: end: 202106
  3. HAEGARDA [Suspect]
     Active Substance: HUMAN C1-ESTERASE INHIBITOR
     Dosage: 3000 UNK, BIW
     Route: 058
     Dates: start: 20210914
  4. HAEGARDA [Suspect]
     Active Substance: HUMAN C1-ESTERASE INHIBITOR
     Dosage: 3000 INTERNATIONAL UNIT, BIW
     Route: 058
     Dates: start: 20200722, end: 202108

REACTIONS (9)
  - Somnolence [Unknown]
  - Confusional state [Unknown]
  - Weight decreased [Unknown]
  - Ill-defined disorder [Unknown]
  - Decreased appetite [Unknown]
  - Asthenia [Unknown]
  - Alopecia [Unknown]
  - Restless legs syndrome [Unknown]
  - Pain in extremity [Unknown]

NARRATIVE: CASE EVENT DATE: 20200701
